FAERS Safety Report 13569232 (Version 2)
Quarter: 2017Q3

REPORT INFORMATION
  Report Type: Report from Study
  Country: CA (occurrence: CA)
  Receive Date: 20170522
  Receipt Date: 20170901
  Transmission Date: 20171127
  Serious: Yes (Other)
  Sender: FDA-Public Use
  Company Number: US-ASTRAZENECA-2017SE53847

PATIENT
  Age: 72 Year
  Sex: Female
  Weight: 53 kg

DRUGS (3)
  1. FASLODEX [Suspect]
     Active Substance: FULVESTRANT
     Indication: BREAST CANCER METASTATIC
     Dosage: MONTHLY
     Route: 030
     Dates: start: 20140313, end: 20170210
  2. PALBOCICLIB [Suspect]
     Active Substance: PALBOCICLIB
     Indication: BREAST CANCER METASTATIC
     Dosage: 125 MG, DAILY FOR 21 DAYS OF 28
     Route: 048
     Dates: start: 20140313
  3. FASLODEX [Suspect]
     Active Substance: FULVESTRANT
     Indication: BREAST CANCER METASTATIC
     Dosage: MONTHLY
     Route: 030
     Dates: start: 20170310

REACTIONS (1)
  - Muscle fibrosis [Recovering/Resolving]

NARRATIVE: CASE EVENT DATE: 20170113
